FAERS Safety Report 24678222 (Version 1)
Quarter: 2024Q4

REPORT INFORMATION
  Report Type: Spontaneous
  Country: PL (occurrence: PL)
  Receive Date: 20241129
  Receipt Date: 20241129
  Transmission Date: 20250114
  Serious: Yes (Other)
  Sender: AUROBINDO
  Company Number: PL-LESVI-2024005721

PATIENT
  Age: 50 Year
  Sex: Male

DRUGS (6)
  1. PREGABALIN [Suspect]
     Active Substance: PREGABALIN
     Indication: Neuralgia
     Dosage: 300 MILLIGRAM, EVERY OTHER DAY [UP TO A DOSE OF 2 ? 300 MG]
     Route: 065
  2. PREGABALIN [Suspect]
     Active Substance: PREGABALIN
     Dosage: 600 MILLIGRAM, ONCE A DAY [300 MILLIGRAM, BID]
     Route: 065
  3. PREGABALIN [Suspect]
     Active Substance: PREGABALIN
     Dosage: 300 MILLIGRAM, TWO TIMES A DAY
     Route: 065
  4. GABAPENTIN [Suspect]
     Active Substance: GABAPENTIN
     Indication: Neuralgia
     Dosage: 1600 MILLIGRAM [UP TO DOSE OF 1600MG]
     Route: 065
  5. AMITRIPTYLINE [Concomitant]
     Active Substance: AMITRIPTYLINE
     Indication: Neuralgia
     Dosage: 25 MILLIGRAM
     Route: 065
  6. AMITRIPTYLINE [Concomitant]
     Active Substance: AMITRIPTYLINE
     Dosage: 75 MILLIGRAM
     Route: 065

REACTIONS (8)
  - Diarrhoea [Unknown]
  - Dry mouth [Unknown]
  - Increased appetite [Unknown]
  - Drug ineffective [Unknown]
  - Dizziness [Unknown]
  - Depression [Unknown]
  - Insomnia [Unknown]
  - Apathy [Unknown]
